FAERS Safety Report 11248011 (Version 1)
Quarter: 2015Q3

REPORT INFORMATION
  Report Type: Spontaneous
  Country: US (occurrence: None)
  Receive Date: 20150707
  Receipt Date: 20150707
  Transmission Date: 20151125
  Serious: Yes (Hospitalization)
  Sender: FDA-Public Use
  Company Number: None

PATIENT
  Age: 59 Year
  Sex: Male
  Weight: 120 kg

DRUGS (1)
  1. CISPLATIN. [Suspect]
     Active Substance: CISPLATIN
     Dosage: INFUSION BEGAN ON 7/15/14 AT 1350, STOPPED AT 1615 DUE TO AES
     Dates: end: 20140715

REACTIONS (5)
  - Chest discomfort [None]
  - Hypoxia [None]
  - Abdominal abscess [None]
  - Abdominal pain upper [None]
  - Dyspnoea [None]

NARRATIVE: CASE EVENT DATE: 20150209
